FAERS Safety Report 4611704-X (Version None)
Quarter: 2005Q1

REPORT INFORMATION
  Report Type: 
  Country: None (occurrence: None)
  Receive Date: 20050311
  Receipt Date: 20041129
  Transmission Date: 20050727
  Serious: No
  Sender: FDA-Public Use
  Company Number: 2004-BP-13270BP

PATIENT
  Age: 69 Year
  Sex: Female

DRUGS (12)
  1. SPIRIVA [Suspect]
     Indication: CHRONIC OBSTRUCTIVE PULMONARY DISEASE
     Dosage: 18 MCH (18 MCG), IH
     Route: 055
     Dates: start: 20040701
  2. ALBUTEROL [Concomitant]
  3. MAXAIR [Concomitant]
  4. THEOPHYLLINE [Concomitant]
  5. POTASSIUM ACETATE [Concomitant]
  6. LASIX (LASIX) [Concomitant]
  7. OXYGEN (OXYGEN) [Concomitant]
  8. NEBULIZER [Concomitant]
  9. MIACALCIN [Concomitant]
  10. SINGULAIR (MONTELUKAST) [Concomitant]
  11. NAPROSYN [Concomitant]
  12. EYE DROPS (TETRYZOLINE HYDROCHLORIDE) [Concomitant]

REACTIONS (1)
  - DYSPNOEA [None]
